FAERS Safety Report 23028669 (Version 1)
Quarter: 2023Q4

REPORT INFORMATION
  Report Type: Spontaneous
  Country: US (occurrence: US)
  Receive Date: 20231004
  Receipt Date: 20231004
  Transmission Date: 20240109
  Serious: No
  Sender: FDA-Public Use
  Company Number: US-Horizon-KRY-0541-2020

PATIENT

DRUGS (4)
  1. KRYSTEXXA [Suspect]
     Active Substance: PEGLOTICASE
     Indication: Gout
     Dosage: 8MG
     Route: 042
     Dates: start: 2019
  2. COLCHICINE [Concomitant]
     Active Substance: COLCHICINE
  3. ULORIC [Concomitant]
     Active Substance: FEBUXOSTAT
  4. METHOTREXATE [Concomitant]
     Active Substance: METHOTREXATE
     Indication: Gout
     Dosage: 15MG
     Dates: start: 2020

REACTIONS (3)
  - Drug specific antibody present [Recovering/Resolving]
  - Therapeutic response decreased [Recovering/Resolving]
  - Therapeutic response changed [Unknown]

NARRATIVE: CASE EVENT DATE: 20190101
